FAERS Safety Report 10704213 (Version 4)
Quarter: 2015Q2

REPORT INFORMATION
  Report Type: Spontaneous
  Country: US (occurrence: US)
  Receive Date: 20150112
  Receipt Date: 20150429
  Transmission Date: 20150821
  Serious: Yes (Other)
  Sender: FDA-Public Use
  Company Number: US-009507513-1110USA03603

PATIENT
  Sex: Male

DRUGS (2)
  1. DORYX [Concomitant]
     Active Substance: DOXYCYCLINE HYCLATE
     Dosage: 100 UNK, 1-3 TIMES/DAY
  2. PROPECIA [Suspect]
     Active Substance: FINASTERIDE
     Indication: ALOPECIA
     Dosage: 1 MG, UNK
     Route: 048
     Dates: start: 20030401, end: 20070602

REACTIONS (31)
  - Blood oestrogen increased [Unknown]
  - Arthralgia [Unknown]
  - Miliaria [Unknown]
  - Feeling abnormal [Unknown]
  - Hypoaesthesia [Unknown]
  - Erectile dysfunction [Unknown]
  - Libido decreased [Unknown]
  - Abdominal pain [Unknown]
  - Sexual dysfunction [Unknown]
  - Eyelid ptosis [Unknown]
  - Anxiety [Unknown]
  - Dissociation [Unknown]
  - Stress [Unknown]
  - Paraesthesia [Unknown]
  - Drug ineffective [Unknown]
  - Alcohol intolerance [Unknown]
  - Muscle twitching [Unknown]
  - Ejaculation failure [Unknown]
  - Loss of libido [Unknown]
  - Dizziness [Unknown]
  - Flatulence [Unknown]
  - Dry eye [Unknown]
  - Cognitive disorder [Unknown]
  - Insomnia [Unknown]
  - Initial insomnia [Unknown]
  - Vision blurred [Unknown]
  - Tinnitus [Unknown]
  - Adverse event [Unknown]
  - Ejaculation disorder [Unknown]
  - Depression [Not Recovered/Not Resolved]
  - Dermatitis [Unknown]

NARRATIVE: CASE EVENT DATE: 20031010
